FAERS Safety Report 9772022 (Version 2)
Quarter: 2013Q4

REPORT INFORMATION
  Report Type: Report from Study
  Country: MY (occurrence: MY)
  Receive Date: 20131219
  Receipt Date: 20131219
  Transmission Date: 20140711
  Serious: Yes (Death, Life-Threatening, Hospitalization)
  Sender: FDA-Public Use
  Company Number: MY-BAYER-2013-146316

PATIENT
  Age: 38 Year
  Sex: Female

DRUGS (1)
  1. BLINDED ACETYLSALICYLIC ACID({=100 MG) [Suspect]

REACTIONS (1)
  - Haemorrhagic stroke [Fatal]
